FAERS Safety Report 11054894 (Version 1)
Quarter: 2015Q2

REPORT INFORMATION
  Report Type: Spontaneous
  Country: US (occurrence: None)
  Receive Date: 20150421
  Receipt Date: 20150421
  Transmission Date: 20150821
  Serious: No
  Sender: FDA-Public Use
  Company Number: None

PATIENT
  Age: 75 Year
  Sex: Female
  Weight: 50.8 kg

DRUGS (6)
  1. ADVAIR HFA [Concomitant]
     Active Substance: FLUTICASONE PROPIONATE\SALMETEROL XINAFOATE
  2. BENTYL [Concomitant]
     Active Substance: DICYCLOMINE HYDROCHLORIDE
  3. PROLIA [Suspect]
     Active Substance: DENOSUMAB
     Indication: OSTEOPOROSIS
     Dosage: 1 INJ EVERY 6 MONTHS EVERY 6 MONTHS INJ, SUB Q
     Route: 058
  4. PROLIA [Suspect]
     Active Substance: DENOSUMAB
     Indication: BONE LOSS
     Dosage: 1 INJ EVERY 6 MONTHS EVERY 6 MONTHS INJ, SUB Q
     Route: 058
  5. PRILOSECT [Concomitant]
  6. CALCIUM WITH VIT D [Concomitant]

REACTIONS (6)
  - Myalgia [None]
  - Arthralgia [None]
  - Bone pain [None]
  - Pneumonia [None]
  - Hypoaesthesia [None]
  - Condition aggravated [None]

NARRATIVE: CASE EVENT DATE: 201406
